FAERS Safety Report 4460006-3 (Version None)
Quarter: 2004Q3

REPORT INFORMATION
  Report Type: 
  Country: None (occurrence: None)
  Receive Date: 20040928
  Receipt Date: 20030924
  Transmission Date: 20050211
  Serious: No
  Sender: FDA-Public Use
  Company Number: US-GLAXOSMITHKLINE-A0427345A

PATIENT
  Age: 60 Year
  Sex: Male

DRUGS (4)
  1. SEREVENT [Suspect]
     Indication: ILL-DEFINED DISORDER
     Route: 055
     Dates: start: 20030823
  2. ATROVENT [Concomitant]
  3. PREDNISONE [Concomitant]
  4. Z-PAK [Concomitant]

REACTIONS (2)
  - DYSPNOEA EXACERBATED [None]
  - PHARMACEUTICAL PRODUCT COMPLAINT [None]
